FAERS Safety Report 4939470-9 (Version None)
Quarter: 2006Q1

REPORT INFORMATION
  Report Type: 
  Country: None (occurrence: None)
  Receive Date: 20060310
  Receipt Date: 20060301
  Transmission Date: 20060701
  Serious: Yes (Death, Hospitalization)
  Sender: FDA-Public Use
  Company Number: NSADSS2002002091

PATIENT
  Sex: Female
  Weight: 39.01 kg

DRUGS (12)
  1. REMICADE [Suspect]
     Route: 041
  2. REMICADE [Suspect]
     Indication: CROHN'S DISEASE
     Route: 041
  3. PREDNISONE [Suspect]
     Indication: DRUG USE FOR UNKNOWN INDICATION
  4. PENTASA [Concomitant]
  5. VALIUM [Concomitant]
  6. LOMOTIL [Concomitant]
  7. LOMOTIL [Concomitant]
  8. ZANTAC [Concomitant]
  9. RISPERDAL [Concomitant]
  10. FENTANYL CITRATE [Concomitant]
  11. ACETAMINOPHEN/CODIENE [Concomitant]
  12. ACETAMINOPHEN/CODIENE [Concomitant]

REACTIONS (6)
  - BRAIN STEM HAEMORRHAGE [None]
  - CHEST PAIN [None]
  - DEHYDRATION [None]
  - GASTROINTESTINAL DISORDER [None]
  - HYPERTENSION [None]
  - MYCOBACTERIUM CHELONEI INFECTION [None]
